FAERS Safety Report 19610235 (Version 1)
Quarter: 2021Q3

REPORT INFORMATION
  Report Type: Spontaneous
  Country: US (occurrence: US)
  Receive Date: 20210723
  Receipt Date: 20210723
  Transmission Date: 20211014
  Serious: Yes (Hospitalization)
  Sender: FDA-Public Use
  Company Number: None

PATIENT
  Age: 60 Year
  Sex: Female
  Weight: 66.6 kg

DRUGS (1)
  1. RITUXIMAB (MOAB C2B8 ANTI CD20, CHIMERIC) 1400 MG [Suspect]
     Active Substance: RITUXIMAB
     Dates: end: 20210525

REACTIONS (9)
  - Malaise [None]
  - COVID-19 [None]
  - Pyrexia [None]
  - Atrial fibrillation [None]
  - Cough [None]
  - Vomiting [None]
  - Asthenia [None]
  - Decreased appetite [None]
  - Diarrhoea [None]

NARRATIVE: CASE EVENT DATE: 20210710
